FAERS Safety Report 4781364-6 (Version None)
Quarter: 2005Q3

REPORT INFORMATION
  Report Type: 
  Country: None (occurrence: None)
  Receive Date: 20050928
  Receipt Date: 20050815
  Transmission Date: 20060218
  Serious: Yes (Other)
  Sender: FDA-Public Use
  Company Number: US-GLAXOSMITHKLINE-A0570202A

PATIENT
  Sex: Male
  Weight: 118 kg

DRUGS (18)
  1. CITRUCEL CAPLETS [Suspect]
     Indication: CONSTIPATION
     Route: 048
     Dates: start: 20050801, end: 20050801
  2. LIPITOR [Concomitant]
  3. VASOTEC [Concomitant]
  4. TENORMIN [Concomitant]
  5. CELEBREX [Concomitant]
  6. MULTIVITAMIN [Concomitant]
  7. ASPIRIN [Concomitant]
  8. SOMA [Concomitant]
  9. ZANTAC [Concomitant]
  10. ACIPHEX [Concomitant]
  11. TRAZODONE [Concomitant]
  12. TRAMADOL [Concomitant]
  13. ALLEGRA [Concomitant]
  14. ALBUTEROL [Concomitant]
  15. RESTORIL [Concomitant]
  16. ZETIA [Concomitant]
  17. TYLENOL (CAPLET) [Concomitant]
  18. CPAP [Concomitant]

REACTIONS (4)
  - CONSTIPATION [None]
  - GASTROINTESTINAL DISORDER [None]
  - RECTAL HAEMORRHAGE [None]
  - RECTAL TENESMUS [None]
